FAERS Safety Report 18721982 (Version 1)
Quarter: 2021Q1

REPORT INFORMATION
  Report Type: Spontaneous
  Country: US (occurrence: US)
  Receive Date: 20210111
  Receipt Date: 20210111
  Transmission Date: 20210419
  Serious: Yes (Hospitalization, Other)
  Sender: FDA-Public Use
  Company Number: US-AUROBINDO-AUR-APL-2020-064327

PATIENT
  Sex: Female
  Weight: 1.49 kg

DRUGS (1)
  1. METFORMIN [Suspect]
     Active Substance: METFORMIN HYDROCHLORIDE
     Indication: GESTATIONAL DIABETES
     Dosage: UNK
     Route: 064

REACTIONS (6)
  - Low birth weight baby [Unknown]
  - Foetal exposure during pregnancy [Unknown]
  - Neonatal respiratory distress syndrome [Unknown]
  - Premature baby [Unknown]
  - Emphysema [Unknown]
  - Pneumothorax [Unknown]
